FAERS Safety Report 20348235 (Version 1)
Quarter: 2022Q1

REPORT INFORMATION
  Report Type: Spontaneous
  Country: GB (occurrence: GB)
  Receive Date: 20220119
  Receipt Date: 20220119
  Transmission Date: 20220423
  Serious: Yes (Other)
  Sender: FDA-Public Use
  Company Number: None

PATIENT
  Age: 52 Year
  Sex: Female
  Weight: 92 kg

DRUGS (21)
  1. SPIRONOLACTONE [Suspect]
     Active Substance: SPIRONOLACTONE
     Route: 065
     Dates: start: 20211203
  2. ASPIRIN [Concomitant]
     Active Substance: ASPIRIN
     Dosage: 1 DOSAGE FORMS DAILY;
     Dates: start: 20210520
  3. BISOPROLOL [Concomitant]
     Active Substance: BISOPROLOL
     Dosage: AS PREVIOUSLY ADVISED
     Dates: start: 20211020
  4. CARBOCYSTEINE [Concomitant]
     Active Substance: CARBOCYSTEINE
     Dosage: 3 DOSAGE FORMS DAILY;
     Dates: start: 20211020
  5. COCODAMOL [Concomitant]
     Active Substance: ACETAMINOPHEN\CODEINE PHOSPHATE
     Dosage: TAKE ONE OR TWO UP TO 4 TIMES/DAY
     Dates: start: 20211223
  6. DERMOL [Concomitant]
     Active Substance: BENZALKONIUM CHLORIDE\CHLORHEXIDINE HYDROCHLORIDE\ISOPROPYL MYRISTATE\PARAFFIN
     Dosage: USE AS DIRECTED
     Dates: start: 20211020
  7. DOXYCYCLINE [Concomitant]
     Active Substance: DOXYCYCLINE
     Dosage: TWO NOW THEN ONE DAILY
     Dates: start: 20211213, end: 20211220
  8. BECLOMETHASONE\FORMOTEROL [Concomitant]
     Active Substance: BECLOMETHASONE\FORMOTEROL
     Dosage: 4 DOSAGE FORMS DAILY; INHALE 2 PUFFS TWICE DAILY THROUGHT HE SPACER C...
     Route: 055
     Dates: start: 20210712
  9. FUROSEMIDE [Concomitant]
     Active Substance: FUROSEMIDE
     Dosage: 1 DOSAGE FORMS DAILY; EACH MORNING
     Dates: start: 20210915
  10. GABAPENTIN [Concomitant]
     Active Substance: GABAPENTIN
     Dosage: TAKE TWO IN MORNING, ONE AT LUNCHTIME, TWO IN L...
     Dates: start: 20210712
  11. NITROGLYCERIN [Concomitant]
     Active Substance: NITROGLYCERIN
     Indication: Chest pain
     Dosage: ONE PUFF AS NEEDED,
     Dates: start: 20190412
  12. LANSOPRAZOLE [Concomitant]
     Active Substance: LANSOPRAZOLE
     Indication: Dyspepsia
     Dosage: 1 DOSAGE FORMS DAILY; AS NEEDED
     Dates: start: 20210712
  13. LOPERAMIDE [Concomitant]
     Active Substance: LOPERAMIDE
     Indication: Diarrhoea
     Dosage: 1 DOSAGE FORMS DAILY; AS NEEDED TO CONTROL DIARRHOEA
     Dates: start: 20210712
  14. NORTRIPTYLINE [Concomitant]
     Active Substance: NORTRIPTYLINE
     Dosage: 2 DOSAGE FORMS DAILY;  AT NIGHT
     Dates: start: 20210712
  15. POTASSIUM CHLORIDE [Concomitant]
     Active Substance: POTASSIUM CHLORIDE
     Dosage: 6 DOSAGE FORMS DAILY;
     Dates: start: 20211223, end: 20211226
  16. PREDNISOLONE [Concomitant]
     Active Substance: PREDNISOLONE
     Dosage: 6 DOSAGE FORMS DAILY; TAKE 6 TABLETS ALTOGETHER ONCE DAILY WITH FOOD.
     Dates: start: 20211020
  17. SALOFALK [Concomitant]
     Dosage: 1 DOSAGE FORMS DAILY;
     Dates: start: 20210520
  18. SANDO-K [Concomitant]
     Indication: Blood potassium decreased
     Dosage: 2 DOSAGE FORMS DAILY;
     Dates: start: 20211213, end: 20211223
  19. SIMVASTATIN [Concomitant]
     Active Substance: SIMVASTATIN
     Dosage: 1 DOSAGE FORMS DAILY;  AT NIGHT
     Dates: start: 20201202
  20. SPIRIVA [Concomitant]
     Active Substance: TIOTROPIUM BROMIDE MONOHYDRATE
     Dosage: 2 DOSAGE FORMS DAILY; TWO PUFFS ONCE DAILY
     Dates: start: 20210712
  21. VENTOLIN [Concomitant]
     Active Substance: ALBUTEROL SULFATE
     Dosage: INHALE 2 DOSES AS NEEDED
     Route: 055
     Dates: start: 20210712

REACTIONS (2)
  - Dermatitis allergic [Recovered/Resolved]
  - Drug reaction with eosinophilia and systemic symptoms [Unknown]

NARRATIVE: CASE EVENT DATE: 20220107
